FAERS Safety Report 21378236 (Version 1)
Quarter: 2022Q3

REPORT INFORMATION
  Report Type: Spontaneous
  Country: US (occurrence: US)
  Receive Date: 20220927
  Receipt Date: 20220927
  Transmission Date: 20221027
  Serious: Yes (Hospitalization, Other)
  Sender: FDA-Public Use
  Company Number: US-SUN PHARMACEUTICAL INDUSTRIES LTD-2022R1-355882

PATIENT
  Age: 27 Year
  Sex: Female

DRUGS (10)
  1. INDOMETHACIN [Suspect]
     Active Substance: INDOMETHACIN
     Indication: Uterine atony
     Dosage: UNK
     Route: 065
  2. MAGNESIUM [Suspect]
     Active Substance: MAGNESIUM
     Indication: Uterine atony
     Dosage: UNK
     Route: 042
  3. NITROGLYCERIN [Suspect]
     Active Substance: NITROGLYCERIN
     Indication: Uterine atony
     Dosage: 1UG/KG/MIN
     Route: 065
  4. NITROGLYCERIN [Suspect]
     Active Substance: NITROGLYCERIN
     Dosage: 1.5 UG/KG/MIN
     Route: 065
  5. NITROGLYCERIN [Suspect]
     Active Substance: NITROGLYCERIN
     Dosage: 100 UG
     Route: 065
  6. PROPOFOL [Suspect]
     Active Substance: PROPOFOL
     Indication: General anaesthesia
     Dosage: 75-200 UG/KG/MIN
     Route: 065
  7. REMIFENTANIL [Suspect]
     Active Substance: REMIFENTANIL
     Indication: General anaesthesia
     Dosage: 0.2 UG/KG/MIN
     Route: 065
  8. FENTANYL [Suspect]
     Active Substance: FENTANYL
     Indication: Uterine atony
     Route: 065
  9. PHENYLEPHRINE [Suspect]
     Active Substance: PHENYLEPHRINE HYDROCHLORIDE
     Indication: Blood pressure abnormal
     Dosage: 0.3-1 UG/KG/MIN
     Route: 065
  10. SUCCINYLCHOLINE [Suspect]
     Active Substance: SUCCINYLCHOLINE
     Indication: Uterine atony
     Dosage: UNK
     Route: 065

REACTIONS (4)
  - Meningomyelocele [Unknown]
  - Preterm premature rupture of membranes [Unknown]
  - Premature delivery [Unknown]
  - Exposure during pregnancy [Unknown]
